FAERS Safety Report 19981605 (Version 1)
Quarter: 2021Q4

REPORT INFORMATION
  Report Type: Spontaneous
  Country: US (occurrence: US)
  Receive Date: 20211022
  Receipt Date: 20211022
  Transmission Date: 20220303
  Serious: No
  Sender: FDA-Public Use
  Company Number: US-ALLERGAN-2106911US

PATIENT
  Age: 57 Year
  Sex: Female

DRUGS (3)
  1. RECTIV [Suspect]
     Active Substance: NITROGLYCERIN
     Indication: Anal fissure
     Dosage: 1 INCH BID
     Route: 054
     Dates: start: 20210130
  2. LIDOCAINE [Concomitant]
     Active Substance: LIDOCAINE
     Indication: Pain
  3. LIDOCAINE [Concomitant]
     Active Substance: LIDOCAINE
     Indication: Anorectal swelling

REACTIONS (4)
  - Poor quality product administered [Unknown]
  - Product closure issue [Unknown]
  - Product container seal issue [Unknown]
  - Product container issue [Unknown]
